FAERS Safety Report 23187525 (Version 2)
Quarter: 2025Q3

REPORT INFORMATION
  Report Type: Spontaneous
  Country: EU (occurrence: EU)
  Receive Date: 20231115
  Receipt Date: 20250915
  Transmission Date: 20251021
  Serious: Yes (Death)
  Sender: BAUSCH AND LOMB
  Company Number: EU-JNJFOC-20231073259

PATIENT
  Age: 66 Year
  Sex: Male

DRUGS (3)
  1. DEXAMETHASONE [Suspect]
     Active Substance: DEXAMETHASONE
     Indication: Plasma cell myeloma
     Dosage: 20 MG/DOSE 1 DOSE(S)/WEEK 4 WEEK(S)/CYCLE
     Route: 065
     Dates: end: 20220126
  2. VELCADE [Suspect]
     Active Substance: BORTEZOMIB
     Indication: Plasma cell myeloma
     Dosage: 2.5 MG/DOSE 1 DOSE(S)/WEEK 4 WEEK(S)/CYCLE SIXTH LINE OF TREATMENT
     Route: 065
     Dates: end: 20220126
  3. DARZALEX [Suspect]
     Active Substance: DARATUMUMAB
     Indication: Plasma cell myeloma
     Dosage: DARATUMUMAB 1200 MG/DOSE 1 DOSE(S)/WEEK 4 WEEK(S)/CYCLE
     Route: 058
     Dates: end: 20220126

REACTIONS (9)
  - Respiratory failure [Fatal]
  - Hepatic cytolysis [Fatal]
  - Plasmacytoma [Fatal]
  - Acute kidney injury [Fatal]
  - Circulatory collapse [Fatal]
  - Pulmonary sepsis [Fatal]
  - Cerebral infarction [Fatal]
  - Intentional product use issue [Unknown]
  - Off label use [Unknown]

NARRATIVE: CASE EVENT DATE: 20220126
